FAERS Safety Report 24312624 (Version 2)
Quarter: 2024Q3

REPORT INFORMATION
  Report Type: Spontaneous
  Country: GB (occurrence: GB)
  Receive Date: 20240912
  Receipt Date: 20240924
  Transmission Date: 20241016
  Serious: Yes (Life-Threatening, Other)
  Sender: PERRIGO
  Company Number: None

PATIENT
  Age: 59 Year
  Sex: Female

DRUGS (1)
  1. LORATADINE [Suspect]
     Active Substance: LORATADINE
     Indication: Product used for unknown indication
     Route: 065
     Dates: end: 20240901

REACTIONS (3)
  - Suicidal ideation [Recovered/Resolved]
  - Abnormal behaviour [Unknown]
  - Anhedonia [Recovering/Resolving]

NARRATIVE: CASE EVENT DATE: 20240826
